FAERS Safety Report 15416718 (Version 1)
Quarter: 2018Q3

REPORT INFORMATION
  Report Type: Spontaneous
  Country: US (occurrence: US)
  Receive Date: 20180924
  Receipt Date: 20180924
  Transmission Date: 20181010
  Serious: No
  Sender: FDA-Public Use
  Company Number: US-TRIS PHARMA, INC.-2018TRISPO00664

PATIENT

DRUGS (1)
  1. DEXTROMETHORPHAN POLISTIREX [Suspect]
     Active Substance: DEXTROMETHORPHAN HYDROBROMIDE
     Indication: COUGH
     Dosage: 90 MG (15 ML), SINGLE
     Route: 048
     Dates: start: 201808, end: 201808

REACTIONS (2)
  - Incorrect dose administered [Unknown]
  - Nausea [Recovered/Resolved]

NARRATIVE: CASE EVENT DATE: 201808
